FAERS Safety Report 7592248-2 (Version None)
Quarter: 2011Q3

REPORT INFORMATION
  Report Type: 
  Country: None (occurrence: None)
  Receive Date: 20110706
  Receipt Date: 20110627
  Transmission Date: 20111222
  Serious: Yes (Hospitalization, Other)
  Sender: FDA-Public Use
  Company Number: US-BAYER-201036355NA

PATIENT
  Age: 22 Year
  Sex: Female
  Weight: 63.492 kg

DRUGS (9)
  1. YASMIN [Suspect]
     Indication: CONTRACEPTION
     Route: 048
     Dates: start: 20010101
  2. DROSPIRENONE AND ETHINYL ESTRADIOL [Suspect]
     Indication: PRODUCT USED FOR UNKNOWN INDICATION
     Route: 048
     Dates: start: 20010101
  3. PROAIR HFA [Concomitant]
     Indication: ASTHMA
  4. METOPROLOL RETARD [Concomitant]
     Indication: CARDIAC DISORDER
  5. YAZ [Suspect]
     Indication: CONTRACEPTION
     Route: 048
     Dates: start: 20010101
  6. PROPRANOLOL RETARD [Concomitant]
     Indication: CARDIAC DISORDER
  7. REGLAN [Concomitant]
  8. THORAZINE [Concomitant]
  9. ALBUTEROL SULFATE AUTOHALER [Concomitant]
     Indication: ASTHMA

REACTIONS (3)
  - CHOLECYSTITIS CHRONIC [None]
  - GALLBLADDER DISORDER [None]
  - THROMBOSIS [None]
